FAERS Safety Report 17377899 (Version 1)
Quarter: 2020Q1

REPORT INFORMATION
  Report Type: Spontaneous
  Country: US (occurrence: US)
  Receive Date: 20200206
  Receipt Date: 20200206
  Transmission Date: 20200409
  Serious: No
  Sender: FDA-Public Use
  Company Number: US-ABBVIE-19K-163-2628606-00

PATIENT
  Age: 64 Year
  Sex: Female
  Weight: 71.28 kg

DRUGS (5)
  1. VITAMIN D [Concomitant]
     Active Substance: VITAMIN D NOS
     Indication: OSTEOPOROSIS
  2. HUMIRA [Suspect]
     Active Substance: ADALIMUMAB
     Route: 058
  3. METHOTREXATE. [Concomitant]
     Active Substance: METHOTREXATE
     Indication: PSORIATIC ARTHROPATHY
  4. HUMIRA [Suspect]
     Active Substance: ADALIMUMAB
     Indication: PSORIATIC ARTHROPATHY
     Route: 058
     Dates: start: 20181205, end: 20190101
  5. FOLIC ACID. [Concomitant]
     Active Substance: FOLIC ACID
     Indication: ADHESION

REACTIONS (5)
  - Wrong technique in product usage process [Unknown]
  - Injection site injury [Recovered/Resolved]
  - Incorrect dose administered [Unknown]
  - Needle issue [Unknown]
  - Injection site haemorrhage [Recovered/Resolved]

NARRATIVE: CASE EVENT DATE: 20190115
